FAERS Safety Report 24857157 (Version 1)
Quarter: 2025Q1

REPORT INFORMATION
  Report Type: Other
  Country: CA (occurrence: CA)
  Receive Date: 20250117
  Receipt Date: 20250117
  Transmission Date: 20250409
  Serious: Yes (Other)
  Sender: PFIZER
  Company Number: CA-PFIZER INC-202500009788

PATIENT
  Age: 63 Year
  Sex: Male

DRUGS (3)
  1. FLUCONAZOLE [Suspect]
     Active Substance: FLUCONAZOLE
     Indication: Pleural effusion
  2. CIPROFLOXACIN LACTATE [Suspect]
     Active Substance: CIPROFLOXACIN LACTATE
  3. KETOCONAZOLE [Suspect]
     Active Substance: KETOCONAZOLE

REACTIONS (2)
  - Off label use [Unknown]
  - Endophthalmitis [Unknown]
